FAERS Safety Report 6297784-7 (Version None)
Quarter: 2009Q3

REPORT INFORMATION
  Report Type: 
  Country: None (occurrence: None)
  Receive Date: 20090804
  Receipt Date: 20090804
  Transmission Date: 20100115
  Serious: Yes (Hospitalization)
  Sender: FDA-Public Use
  Company Number: None

PATIENT
  Sex: Female
  Weight: 93.441 kg

DRUGS (2)
  1. CLINDAMYCIN [Suspect]
     Indication: INFECTION
     Dosage: 1 CAP, 4 TIMES PER DAY, PO (2 PILLS TAKEN)
     Route: 048
     Dates: start: 20090801, end: 20090802
  2. DOXYCYCLINE HYCLATE [Suspect]
     Indication: INFECTION
     Dosage: 1 CAP, TWICE A DAY, PO (2 PILLS TAKEN)
     Route: 048
     Dates: start: 20090802, end: 20090803

REACTIONS (8)
  - ABDOMINAL PAIN UPPER [None]
  - CARDIAC FLUTTER [None]
  - CHEST PAIN [None]
  - DYSPNOEA [None]
  - FEELING ABNORMAL [None]
  - FOREIGN BODY TRAUMA [None]
  - HEADACHE [None]
  - THROAT TIGHTNESS [None]
